FAERS Safety Report 6270557-7 (Version None)
Quarter: 2009Q3

REPORT INFORMATION
  Report Type: 
  Country: None (occurrence: None)
  Receive Date: 20090716
  Receipt Date: 20090703
  Transmission Date: 20100115
  Serious: Yes (Other)
  Sender: FDA-Public Use
  Company Number: US-PFIZER INC-2009237800

PATIENT
  Sex: Male
  Weight: 90.718 kg

DRUGS (2)
  1. CHANTIX [Suspect]
     Indication: SMOKING CESSATION THERAPY
     Dosage: 1 MG, 2X/DAY
     Route: 048
  2. LIPITOR [Concomitant]
     Indication: HYPERTENSION
     Route: 048

REACTIONS (3)
  - LOSS OF CONSCIOUSNESS [None]
  - SUDDEN ONSET OF SLEEP [None]
  - SUICIDAL IDEATION [None]
